FAERS Safety Report 7213153-7 (Version None)
Quarter: 2010Q4

REPORT INFORMATION
  Report Type: 
  Country: None (occurrence: None)
  Receive Date: 20101219
  Receipt Date: 20101215
  Transmission Date: 20110411
  Serious: Yes (Death)
  Sender: FDA-Public Use
  Company Number: JPI-P-001974

PATIENT
  Age: 50 Year
  Sex: Male

DRUGS (1)
  1. XYREM [Suspect]
     Indication: CATAPLEXY
     Dosage: 4.5 GM (2.25 GM. 2 IN 1 D), ORAL
     Route: 048
     Dates: start: 20070725, end: 20070808

REACTIONS (16)
  - ABDOMINAL PAIN [None]
  - DIARRHOEA [None]
  - ENURESIS [None]
  - FEELING ABNORMAL [None]
  - FEELING HOT [None]
  - HALLUCINATION [None]
  - HEADACHE [None]
  - HYPERHIDROSIS [None]
  - INSOMNIA [None]
  - MALAISE [None]
  - MUSCLE SPASMS [None]
  - MYOPIA [None]
  - PARALYSIS [None]
  - SOMNOLENCE [None]
  - TREMOR [None]
  - VERTIGO [None]
